FAERS Safety Report 7638371-5 (Version None)
Quarter: 2011Q3

REPORT INFORMATION
  Report Type: 
  Country: None (occurrence: None)
  Receive Date: 20110727
  Receipt Date: 20110621
  Transmission Date: 20111222
  Serious: No
  Sender: FDA-Public Use
  Company Number: US-BAYER-2011-054428

PATIENT
  Age: 21 Month
  Sex: Female
  Weight: 14 kg

DRUGS (2)
  1. ALEVE (CAPLET) [Suspect]
     Route: 048
  2. ALBUTEROL SULFATE AUTOHALER [Concomitant]
     Indication: WHEEZING

REACTIONS (2)
  - COUGH [None]
  - RETCHING [None]
